FAERS Safety Report 4764897-8 (Version None)
Quarter: 2005Q3

REPORT INFORMATION
  Report Type: 
  Country: None (occurrence: None)
  Receive Date: 20050906
  Receipt Date: 20050823
  Transmission Date: 20060218
  Serious: Yes (Hospitalization, Other)
  Sender: FDA-Public Use
  Company Number: USA0508106382

PATIENT
  Age: 84 Year
  Sex: Female

DRUGS (2)
  1. FORTEO [Suspect]
     Dosage: 20 UG
     Dates: start: 20050126, end: 20050822
  2. ALEVE [Concomitant]

REACTIONS (2)
  - BLOOD CALCIUM INCREASED [None]
  - GASTROINTESTINAL ULCER HAEMORRHAGE [None]
